FAERS Safety Report 6833507-8 (Version None)
Quarter: 2010Q3

REPORT INFORMATION
  Report Type: 
  Country: None (occurrence: None)
  Receive Date: 20100712
  Receipt Date: 20070323
  Transmission Date: 20110219
  Serious: No
  Sender: FDA-Public Use
  Company Number: US-PFIZER INC-2007025283

PATIENT
  Sex: Male
  Weight: 74.84 kg

DRUGS (8)
  1. CHANTIX [Suspect]
     Indication: NICOTINE DEPENDENCE
     Dates: start: 20070318
  2. DEMEROL [Concomitant]
  3. VALIUM [Concomitant]
  4. PHENYTOIN [Concomitant]
     Indication: CONVULSION
  5. MONTELUKAST [Concomitant]
  6. ALBUTEROL [Concomitant]
  7. IPRATROPIUM BROMIDE AND ALBUTEROL SULFATE [Concomitant]
  8. AMBIEN [Concomitant]

REACTIONS (1)
  - DRUG INEFFECTIVE [None]
